FAERS Safety Report 9846323 (Version 1)
Quarter: 2013Q4

REPORT INFORMATION
  Report Type: Spontaneous
  Country: US (occurrence: None)
  Receive Date: 20131223
  Receipt Date: 20131223
  Transmission Date: 20140711
  Serious: No
  Sender: FDA-Public Use
  Company Number: CABO-13003282

PATIENT
  Age: 14 Year
  Sex: Female

DRUGS (2)
  1. COMETRIQ [Suspect]
     Indication: BRAIN NEOPLASM MALIGNANT
     Route: 048
     Dates: start: 20130808, end: 2013
  2. AVASTIN(BEVACIZUMAB) [Concomitant]

REACTIONS (7)
  - Blood count abnormal [None]
  - Nausea [None]
  - Rash [None]
  - Diarrhoea [None]
  - Abdominal discomfort [None]
  - Asthenia [None]
  - Off label use [None]
